FAERS Safety Report 20436030 (Version 2)
Quarter: 2022Q1

REPORT INFORMATION
  Report Type: Spontaneous
  Country: ZA (occurrence: ZA)
  Receive Date: 20220207
  Receipt Date: 20220207
  Transmission Date: 20220423
  Serious: Yes (Hospitalization, Other)
  Sender: FDA-Public Use
  Company Number: ZA-CIPLA LTD.-2022ZA00465

PATIENT

DRUGS (11)
  1. LOPERAMIDE [Interacting]
     Active Substance: LOPERAMIDE
     Indication: Product used for unknown indication
     Dosage: UNK
     Route: 065
  2. AMLODIPINE BESYLATE [Interacting]
     Active Substance: AMLODIPINE BESYLATE
     Indication: Cardiovascular disorder
     Dosage: 5 MILLIGRAM, BID (ONE TABLET TWICE A DAY FOR 30 DAYS)
     Route: 065
  3. ECOTRIN [Interacting]
     Active Substance: ASPIRIN
     Indication: Cardiovascular disorder
     Dosage: 81 MILLIGRAM, QD (ONE TABLET IN THE MORNING FOR 30 DAYS)
     Route: 065
  4. PRADAXA [Interacting]
     Active Substance: DABIGATRAN ETEXILATE MESYLATE
     Indication: Cardiovascular disorder
     Dosage: 150 MILLIGRAM, BID (ONE CAPSULE TWICE A DAY FOR 30 DAYS)
     Route: 065
  5. ATORVASTATIN CALCIUM [Interacting]
     Active Substance: ATORVASTATIN CALCIUM
     Indication: Cardiovascular disorder
     Dosage: 1 DOSAGE FORM, QD (10 (UNITS UNSPECIFIED), ONE TABLET AT NIGHT)
     Route: 065
  6. PERINDOPRIL ERBUMINE [Interacting]
     Active Substance: PERINDOPRIL ERBUMINE
     Indication: Cardiovascular disorder
     Dosage: 8 MILLIGRAM, QD (ONE TABLET AT NIGHT FOR 30 DAYS)
     Route: 065
  7. BISOPROLOL FUMARATE [Interacting]
     Active Substance: BISOPROLOL FUMARATE
     Indication: Cardiovascular disorder
     Dosage: 5 MILLIGRAM, QD (ONE TABLET AT NIGHT FOR 30 DAYS)
     Route: 065
  8. PANTOPRAZOLE SODIUM [Concomitant]
     Active Substance: PANTOPRAZOLE SODIUM
     Indication: Product used for unknown indication
     Dosage: 40 MILLIGRAM, QD (ONE TABLET DAILY FOR 30 DAYS)
     Route: 065
  9. DONEPEZIL HYDROCHLORIDE [Concomitant]
     Active Substance: DONEPEZIL HYDROCHLORIDE
     Indication: Product used for unknown indication
     Dosage: 5 MILLIGRAM, QD (ONE TABLET IN THE MORNING FOR 30 DAYS)
     Route: 065
  10. ALLOPURINOL [Concomitant]
     Active Substance: ALLOPURINOL
     Indication: Product used for unknown indication
     Dosage: 600 MILLIGRAM, QD (TWO TABLETS AT NIGHT FOR 30 DAYS)
     Route: 065
  11. LEVOTHYROXINE [Concomitant]
     Active Substance: LEVOTHYROXINE
     Indication: Product used for unknown indication
     Dosage: 0.1 MILLIGRAM, QD (ONE TABLET IN THE MORNING FOR 30 DAYS)
     Route: 065

REACTIONS (2)
  - Intestinal obstruction [Unknown]
  - Drug interaction [Unknown]
